FAERS Safety Report 9636411 (Version 2)
Quarter: 2013Q4

REPORT INFORMATION
  Report Type: Spontaneous
  Country: DK (occurrence: IE)
  Receive Date: 20131021
  Receipt Date: 20131101
  Transmission Date: 20140711
  Serious: Yes (Death, Congenital Anomaly)
  Sender: FDA-Public Use
  Company Number: IE-FRI-1000050219

PATIENT
  Sex: Male

DRUGS (1)
  1. LEXAPRO [Suspect]
     Route: 064

REACTIONS (5)
  - Foetal death [Fatal]
  - Hydrops foetalis [Fatal]
  - Multiple cardiac defects [Fatal]
  - Congenital heart valve disorder [Fatal]
  - Foetal exposure during pregnancy [Fatal]
